FAERS Safety Report 12889034 (Version 3)
Quarter: 2016Q4

REPORT INFORMATION
  Report Type: Report from Study
  Country: MX (occurrence: MX)
  Receive Date: 20161027
  Receipt Date: 20161107
  Transmission Date: 20170207
  Serious: Yes (Other)
  Sender: FDA-Public Use
  Company Number: PHHY2016MX147341

PATIENT
  Sex: Male

DRUGS (3)
  1. EXFORGE HCT [Suspect]
     Active Substance: AMLODIPINE BESYLATE\HYDROCHLOROTHIAZIDE\VALSARTAN
     Indication: HYPERTENSION
     Dosage: 1 DF (5 MG AMLODIPINE/12.5 MG HYDROCHLOROTHIAZIDE/160 MG VALSARTAN), QD
     Route: 048
     Dates: start: 2010, end: 2015
  2. METOPROLOL. [Concomitant]
     Active Substance: METOPROLOL
     Indication: HYPERTENSION
     Dosage: 1 DF, QD
     Route: 048
  3. EXFORGE HCT [Suspect]
     Active Substance: AMLODIPINE BESYLATE\HYDROCHLOROTHIAZIDE\VALSARTAN
     Dosage: 1 DF (10 MG AMLODIPINE/25 MG HYDROCHLOROTHIAZIDE/320 MG VALSARTAN,)
     Route: 048

REACTIONS (4)
  - Cataract [Not Recovered/Not Resolved]
  - Blood pressure increased [Recovering/Resolving]
  - Eye disorder [Recovering/Resolving]
  - Retinal tear [Recovering/Resolving]

NARRATIVE: CASE EVENT DATE: 2014
